FAERS Safety Report 8126841-5 (Version None)
Quarter: 2012Q1

REPORT INFORMATION
  Report Type: 
  Country: None (occurrence: None)
  Receive Date: 20120210
  Receipt Date: 20120130
  Transmission Date: 20120608
  Serious: Yes (Other)
  Sender: FDA-Public Use
  Company Number: FR-ACCORD-012293

PATIENT
  Age: 53 Year
  Sex: Female

DRUGS (3)
  1. GEMCITABINE [Suspect]
     Indication: BREAST CANCER
  2. OXALIPLATIN [Suspect]
     Indication: BREAST CANCER
  3. BEVACIZUMAB [Suspect]
     Indication: BREAST CANCER

REACTIONS (3)
  - INFECTIOUS PERITONITIS [None]
  - OFF LABEL USE [None]
  - SMALL INTESTINAL PERFORATION [None]
